FAERS Safety Report 7240653-6 (Version None)
Quarter: 2011Q1

REPORT INFORMATION
  Report Type: 
  Country: None (occurrence: None)
  Receive Date: 20110124
  Receipt Date: 20100414
  Transmission Date: 20110831
  Serious: No
  Sender: FDA-Public Use
  Company Number: US-KINGPHARMUSA00001-K201000464

PATIENT
  Sex: Female
  Weight: 63.492 kg

DRUGS (2)
  1. EPIPEN [Suspect]
     Dosage: 0.3 MG, SINGLE
     Dates: start: 20100412, end: 20100412
  2. PROPRANOLOL [Interacting]
     Indication: MIGRAINE PROPHYLAXIS
     Dosage: 60 MG, QHS
     Route: 048

REACTIONS (9)
  - INJECTION SITE PAIN [None]
  - EXPIRED DRUG ADMINISTERED [None]
  - BRADYCARDIA [None]
  - MUSCULOSKELETAL STIFFNESS [None]
  - HYPERHIDROSIS [None]
  - ACCIDENTAL EXPOSURE [None]
  - INJECTION SITE COLDNESS [None]
  - DRUG INTERACTION [None]
  - INJECTION SITE DISCOLOURATION [None]
